FAERS Safety Report 8924788 (Version 2)
Quarter: 2012Q4

REPORT INFORMATION
  Report Type: 
  Country: JP (occurrence: JP)
  Receive Date: 20121126
  Receipt Date: 20121214
  Transmission Date: 20130627
  Serious: Yes (Hospitalization)
  Sender: FDA-Public Use
  Company Number: JP-PFIZER INC-2012241652

PATIENT
  Age: 47 Year
  Sex: Female

DRUGS (2)
  1. CELECOX [Suspect]
     Dosage: 200 mg, daily
     Route: 048
     Dates: start: 20120727, end: 20120729
  2. REBAMIPIDE [Suspect]
     Dosage: UNK
     Route: 048
     Dates: start: 20120727

REACTIONS (3)
  - Rash generalised [Unknown]
  - Malaise [Unknown]
  - Oedema [Unknown]
